FAERS Safety Report 10749291 (Version 1)
Quarter: 2015Q1

REPORT INFORMATION
  Report Type: Spontaneous
  Country: US (occurrence: None)
  Receive Date: 20150120
  Receipt Date: 20150120
  Transmission Date: 20150721
  Serious: No
  Sender: FDA-Public Use
  Company Number: AEGR000775

PATIENT
  Age: 71 Year
  Sex: Female
  Weight: 60.3 kg

DRUGS (10)
  1. VIT D3 (COLECALCIFEROL) [Concomitant]
  2. COREG [Concomitant]
     Active Substance: CARVEDILOL
  3. CRESTOR [Concomitant]
     Active Substance: ROSUVASTATIN CALCIUM
  4. JUXTAPID [Suspect]
     Active Substance: LOMITAPIDE MESYLATE
     Indication: TYPE IIA HYPERLIPIDAEMIA
     Dates: start: 201402, end: 2014
  5. SYNTHROID [Concomitant]
     Active Substance: LEVOTHYROXINE SODIUM
  6. PLAVIX (CLOPIDOGREL BISULFATE) [Concomitant]
  7. ASPIRIN. [Concomitant]
     Active Substance: ASPIRIN
  8. PRILOSEC (OMEPRAZOLE) [Concomitant]
     Active Substance: OMEPRAZOLE MAGNESIUM
  9. ZETIA [Concomitant]
     Active Substance: EZETIMIBE
  10. FISH OIL [Concomitant]
     Active Substance: FISH OIL

REACTIONS (2)
  - Myalgia [None]
  - Inappropriate schedule of drug administration [None]

NARRATIVE: CASE EVENT DATE: 2014
